FAERS Safety Report 7298638-X (Version None)
Quarter: 2011Q1

REPORT INFORMATION
  Report Type: 
  Country: None (occurrence: None)
  Receive Date: 20110214
  Receipt Date: 20110214
  Transmission Date: 20110831
  Serious: Yes (Death, Hospitalization)
  Sender: FDA-Public Use
  Company Number: None

PATIENT
  Sex: Female
  Weight: 53.3 kg

DRUGS (5)
  1. LEUCOVORIN CALCIUM [Suspect]
     Dosage: 1058 MG
  2. DOXORUBICIN HCL [Suspect]
     Dosage: 116 MG
  3. IFOSFAMIDE [Suspect]
     Dosage: 13.8 G
  4. MESNA [Suspect]
     Dosage: 10450 MG
  5. METHOTREXATE [Suspect]
     Dosage: 36 G

REACTIONS (19)
  - HYPOTENSION [None]
  - ASPARTATE AMINOTRANSFERASE INCREASED [None]
  - PULSE ABNORMAL [None]
  - VENTRICULAR HYPOKINESIA [None]
  - PLEURAL EFFUSION [None]
  - UNRESPONSIVE TO STIMULI [None]
  - MITRAL VALVE INCOMPETENCE [None]
  - LEFT VENTRICULAR DYSFUNCTION [None]
  - TACHYPNOEA [None]
  - ALANINE AMINOTRANSFERASE INCREASED [None]
  - BLOOD PRESSURE ABNORMAL [None]
  - TACHYCARDIA [None]
  - BREATH SOUNDS ABNORMAL [None]
  - PERICARDIAL EFFUSION [None]
  - COUGH [None]
  - DYSPNOEA [None]
  - BLOOD CALCIUM DECREASED [None]
  - PULMONARY OEDEMA [None]
  - BLOOD POTASSIUM DECREASED [None]
